FAERS Safety Report 7906605-5 (Version None)
Quarter: 2011Q4

REPORT INFORMATION
  Report Type: 
  Country: None (occurrence: None)
  Receive Date: 20111110
  Receipt Date: 20111101
  Transmission Date: 20120403
  Serious: Yes (Other)
  Sender: FDA-Public Use
  Company Number: US-AMGEN-USASP2011056714

PATIENT
  Age: 15 Year
  Sex: Female

DRUGS (2)
  1. ENBREL [Suspect]
     Indication: RHEUMATOID ARTHRITIS
     Dosage: 50 MG, QWK
     Dates: start: 20111030
  2. PIROXICAM [Concomitant]
     Dosage: UNK

REACTIONS (3)
  - PHARYNGEAL OEDEMA [None]
  - DYSPHAGIA [None]
  - OROPHARYNGEAL PAIN [None]
